FAERS Safety Report 10156317 (Version 3)
Quarter: 2014Q3

REPORT INFORMATION
  Report Type: Report from Study
  Country: US (occurrence: US)
  Receive Date: 20140507
  Receipt Date: 20140709
  Transmission Date: 20150326
  Serious: Yes (Hospitalization)
  Sender: FDA-Public Use
  Company Number: US-BIOGENIDEC-2014BI039981

PATIENT
  Age: 35 Year
  Sex: Female

DRUGS (9)
  1. METRONIDAZOLE. [Concomitant]
     Active Substance: METRONIDAZOLE
  2. TECFIDERA [Suspect]
     Active Substance: DIMETHYL FUMARATE
     Indication: MULTIPLE SCLEROSIS
     Route: 048
     Dates: start: 201308
  3. OXCARBAZEPINE. [Concomitant]
     Active Substance: OXCARBAZEPINE
     Route: 048
  4. MYCOPHENOLATE [Concomitant]
     Active Substance: MYCOPHENOLIC ACID
  5. TECFIDERA [Suspect]
     Active Substance: DIMETHYL FUMARATE
     Indication: MULTIPLE SCLEROSIS
     Route: 048
     Dates: start: 20130801
  6. ASPIRIN. [Concomitant]
     Active Substance: ASPIRIN
     Route: 048
  7. TOPAMAX [Concomitant]
     Active Substance: TOPIRAMATE
     Route: 048
  8. BALZIURA (PRESUME BALZIVA) [Concomitant]
  9. SULFAMETHOXAZOLE [Concomitant]
     Active Substance: SULFAMETHOXAZOLE

REACTIONS (2)
  - Convulsion [Recovered/Resolved]
  - Memory impairment [Not Recovered/Not Resolved]

NARRATIVE: CASE EVENT DATE: 201404
